FAERS Safety Report 8743444 (Version 4)
Quarter: 2013Q1

REPORT INFORMATION
  Report Type: Spontaneous
  Country: US (occurrence: US)
  Receive Date: 20120824
  Receipt Date: 20130201
  Transmission Date: 20140127
  Serious: Yes (Hospitalization, Other)
  Sender: FDA-Public Use
  Company Number: US-BRISTOL-MYERS SQUIBB COMPANY-16856841

PATIENT
  Age: 72 Year
  Sex: Male
  Weight: 88.43 kg

DRUGS (1)
  1. ORENCIA [Suspect]
     Indication: RHEUMATOID ARTHRITIS
     Dosage: LAST INF: 07AUG2012, SEP-2012
     Route: 042

REACTIONS (3)
  - Pneumonia [Unknown]
  - Prostatic disorder [Unknown]
  - Insomnia [Unknown]
